FAERS Safety Report 25299967 (Version 1)
Quarter: 2025Q2

REPORT INFORMATION
  Report Type: Spontaneous
  Country: US (occurrence: US)
  Receive Date: 20250512
  Receipt Date: 20250512
  Transmission Date: 20250717
  Serious: Yes (Hospitalization)
  Sender: BAYER HEALTHCARE LLC
  Company Number: US-BAYER-2025A062535

PATIENT
  Age: 90 Year
  Sex: Male
  Weight: 68 kg

DRUGS (5)
  1. ASPIRIN [Suspect]
     Active Substance: ASPIRIN
     Indication: Coronary artery disease
     Route: 048
     Dates: start: 20111027, end: 20241127
  2. ATORVASTATIN [Concomitant]
     Active Substance: ATORVASTATIN
     Dates: start: 20200305
  3. PROCARDIA [Concomitant]
     Active Substance: NIFEDIPINE
     Dates: start: 20120927
  4. CALCIUM CARBONATE\CHOLECALCIFEROL [Concomitant]
     Active Substance: CALCIUM CARBONATE\CHOLECALCIFEROL
  5. VITAMIN E [Concomitant]
     Active Substance: .ALPHA.-TOCOPHEROL
     Dates: start: 20180207

REACTIONS (1)
  - Anaemia [None]

NARRATIVE: CASE EVENT DATE: 20241125
